FAERS Safety Report 9603363 (Version 1)
Quarter: 2013Q4

REPORT INFORMATION
  Report Type: Spontaneous
  Country: DK (occurrence: FR)
  Receive Date: 20131007
  Receipt Date: 20131007
  Transmission Date: 20140711
  Serious: Yes (Hospitalization)
  Sender: FDA-Public Use
  Company Number: FR-FRI-1000049608

PATIENT
  Age: 29 Year
  Sex: Male

DRUGS (1)
  1. ESCITALOPRAM [Suspect]
     Route: 048
     Dates: start: 201212, end: 20130302

REACTIONS (1)
  - Ischaemic stroke [Recovered/Resolved with Sequelae]
